FAERS Safety Report 8831794 (Version 1)
Quarter: 2012Q4

REPORT INFORMATION
  Report Type: 
  Country: GB (occurrence: GB)
  Receive Date: 20121009
  Receipt Date: 20121009
  Transmission Date: 20130627
  Serious: Yes (Disabling)
  Sender: FDA-Public Use
  Company Number: GB-PFIZER INC-2012246997

PATIENT
  Age: 83 Year
  Sex: Female

DRUGS (4)
  1. PREGABALIN [Suspect]
     Indication: NEURALGIA
     Dosage: Increased from once daily to twice daily after one week.
     Route: 048
     Dates: start: 20120315, end: 201203
  2. PREGABALIN [Suspect]
     Dosage: Increased from once daily to twice daily after one week.
     Route: 048
     Dates: start: 201203
  3. AMLODIPINE [Concomitant]
     Route: 048
  4. BENDROFLUMETHIAZIDE [Concomitant]
     Route: 048

REACTIONS (1)
  - Faecal incontinence [Recovered/Resolved]
